FAERS Safety Report 8967633 (Version 1)
Quarter: 2012Q4

REPORT INFORMATION
  Report Type: Spontaneous
  Country: US (occurrence: None)
  Receive Date: 20121204
  Receipt Date: 20121204
  Transmission Date: 20130627
  Serious: Yes (Death)
  Sender: FDA-Public Use
  Company Number: UTC-025914

PATIENT
  Age: 68 Year
  Sex: Female

DRUGS (3)
  1. REMODULIN [Suspect]
     Indication: PULMONARY ARTERIAL HYPERTENSION
     Route: 058
     Dates: start: 20120822, end: 2012
  2. REMODULIN [Suspect]
     Indication: PULMONARY ARTERIAL HYPERTENSION
  3. TRACLEER (BOSENTAN) [Concomitant]

REACTIONS (1)
  - Death [None]
